FAERS Safety Report 14752145 (Version 1)
Quarter: 2018Q2

REPORT INFORMATION
  Report Type: Spontaneous
  Country: US (occurrence: US)
  Receive Date: 20180412
  Receipt Date: 20180412
  Transmission Date: 20180711
  Serious: Yes (Hospitalization)
  Sender: FDA-Public Use
  Company Number: US-LPDUSPRD-20180552

PATIENT
  Age: 16 Year
  Sex: Female

DRUGS (6)
  1. METHOTREXATE. [Suspect]
     Active Substance: METHOTREXATE
     Dosage: UNKNOWN
     Route: 037
  2. LEUCOVORIN CALCIUM INJECTION (0517-8605-25) [Suspect]
     Active Substance: LEUCOVORIN CALCIUM
     Dosage: UNKNOWN
     Route: 037
  3. VINCRISTINE [Suspect]
     Active Substance: VINCRISTINE
     Dosage: UNKNOWN
     Route: 065
  4. CYTARABINE. [Suspect]
     Active Substance: CYTARABINE
     Dosage: UNKNOWN
     Route: 037
  5. PEGASPARGASE/PEGYLATED ASPARAGINASE [Suspect]
     Active Substance: ASPARAGINASE\PEGASPARGASE
     Dosage: UNKNOWN
     Route: 065
  6. DEXAMETHASONE SODIUM PHOSPHATE INJECTION, USP (4901-25) [Suspect]
     Active Substance: DEXAMETHASONE SODIUM PHOSPHATE
     Dosage: UNKNOWN
     Route: 065

REACTIONS (6)
  - Dysphagia [Recovered/Resolved]
  - Vasculitis [Recovered/Resolved]
  - Ischaemic stroke [Unknown]
  - Dysarthria [Recovered/Resolved]
  - Paresis [Recovered/Resolved]
  - Incorrect route of drug administration [Unknown]
